FAERS Safety Report 7708149-2 (Version None)
Quarter: 2011Q3

REPORT INFORMATION
  Report Type: 
  Country: None (occurrence: None)
  Receive Date: 20110825
  Receipt Date: 20110816
  Transmission Date: 20111222
  Serious: No
  Sender: FDA-Public Use
  Company Number: US-BIOGENIDEC-2011BI008653

PATIENT
  Sex: Female

DRUGS (1)
  1. TYSABRI [Suspect]
     Indication: MULTIPLE SCLEROSIS
     Route: 042
     Dates: start: 20061120

REACTIONS (15)
  - DEPRESSION SUICIDAL [None]
  - BALANCE DISORDER [None]
  - ARTHRITIS [None]
  - DIPLOPIA [None]
  - MOTOR DYSFUNCTION [None]
  - MULTIPLE SCLEROSIS [None]
  - COORDINATION ABNORMAL [None]
  - WHITE BLOOD CELL COUNT INCREASED [None]
  - DEPRESSION [None]
  - GAIT DISTURBANCE [None]
  - INFLAMMATION [None]
  - HYPOAESTHESIA [None]
  - ASTHENIA [None]
  - ARTHRALGIA [None]
  - MULTIPLE SCLEROSIS RELAPSE [None]
